FAERS Safety Report 8340917-9 (Version None)
Quarter: 2012Q2

REPORT INFORMATION
  Report Type: 
  Country: None (occurrence: None)
  Receive Date: 20120507
  Receipt Date: 20120427
  Transmission Date: 20120825
  Serious: Yes (Other)
  Sender: FDA-Public Use
  Company Number: PHHY2012CA029850

PATIENT
  Sex: Female

DRUGS (12)
  1. ESCITALOPRAM [Concomitant]
     Dosage: 20 MG, QD
  2. CYANOCOBALAMIN [Concomitant]
  3. LIPITOR [Concomitant]
     Dosage: 40 MG, UNK
     Route: 048
  4. CLOZARIL [Suspect]
     Indication: SCHIZOPHRENIA
     Dosage: 87.5 MG, UNK
     Route: 048
  5. ATIVAN [Concomitant]
     Dosage: 0.5 MG, UNK
     Route: 048
  6. ASPIRIN [Concomitant]
     Dosage: 50 MG, QD
     Route: 048
  7. METFORMIN HCL [Concomitant]
     Dosage: 500 MG, QD
     Route: 048
  8. AVASTIN [Concomitant]
     Dosage: 40 MG, TID
  9. LITHIUM CARBONATE [Concomitant]
     Dosage: 600 MG, QHS
     Route: 048
  10. FLORINEF [Concomitant]
     Dosage: 0.1 MG, BID
  11. VITAMIN D [Concomitant]
     Dosage: 1000 U, UNK
     Route: 048
  12. RISPERDAL [Concomitant]
     Dosage: 3 MG, QD

REACTIONS (6)
  - EXTRAPYRAMIDAL DISORDER [None]
  - AGITATION [None]
  - SOMNOLENCE [None]
  - GAIT DISTURBANCE [None]
  - FALL [None]
  - DYSKINESIA [None]
